FAERS Safety Report 4967349-5 (Version None)
Quarter: 2006Q2

REPORT INFORMATION
  Report Type: 
  Country: None (occurrence: None)
  Receive Date: 20060410
  Receipt Date: 20060328
  Transmission Date: 20061013
  Serious: Yes (Other)
  Sender: FDA-Public Use
  Company Number: US-JNJFOC-20060307457

PATIENT
  Sex: Male
  Weight: 16.78 kg

DRUGS (1)
  1. RISPERDAL [Suspect]
     Indication: SLEEP DISORDER
     Route: 048

REACTIONS (5)
  - ABNORMAL BEHAVIOUR [None]
  - DISTURBANCE IN ATTENTION [None]
  - DRUG ADMINISTRATION ERROR [None]
  - PYROMANIA [None]
  - TREATMENT NONCOMPLIANCE [None]
